FAERS Safety Report 6123068-3 (Version None)
Quarter: 2009Q1

REPORT INFORMATION
  Report Type: 
  Country: None (occurrence: None)
  Receive Date: 20090318
  Receipt Date: 20090306
  Transmission Date: 20090719
  Serious: Yes (Death)
  Sender: FDA-Public Use
  Company Number: GB-PFIZER INC-2008067937

PATIENT

DRUGS (17)
  1. GABAPENTIN [Suspect]
     Route: 048
     Dates: start: 20080401, end: 20080506
  2. BENDROFLUAZIDE [Concomitant]
     Route: 048
     Dates: start: 20050101, end: 20080506
  3. IBUPROFEN TABLETS [Concomitant]
     Route: 048
     Dates: start: 20080418, end: 20080506
  4. NORETHINDRONE ACETATE [Concomitant]
     Route: 048
     Dates: start: 20070101, end: 20080506
  5. ORAMORPH SR [Concomitant]
     Route: 048
     Dates: start: 20080418, end: 20080506
  6. RABEPRAZOLE SODIUM [Concomitant]
     Route: 048
     Dates: start: 20030101, end: 20080506
  7. VALSARTAN [Concomitant]
     Route: 048
     Dates: start: 20050101, end: 20080506
  8. VENLAFAXINE HCL [Concomitant]
     Route: 048
     Dates: start: 20071120, end: 20080506
  9. MORPHINE SULFATE [Concomitant]
     Route: 048
     Dates: start: 20080418, end: 20080506
  10. METOCLOPRAMIDE HYDROCHLORIDE [Concomitant]
     Dosage: 10 MG, UNK
  11. NULYTELY [Concomitant]
  12. TRAMADOL [Concomitant]
     Indication: PAIN
     Dosage: 50 MG, UNK
  13. AMITRIPTYLINE [Concomitant]
     Dosage: 10 MG, UNK
     Dates: start: 20080326
  14. CO-DANTHRAMER [Concomitant]
     Dates: start: 20080422
  15. GAVISCON [Concomitant]
     Dates: start: 20080422
  16. MEGACE [Concomitant]
     Dosage: 40 MG, UNK
     Dates: start: 20080221
  17. MICRALAX [Concomitant]
     Dates: start: 20080429

REACTIONS (1)
  - RENAL FAILURE ACUTE [None]
